FAERS Safety Report 8970076 (Version 1)
Quarter: 2012Q4

REPORT INFORMATION
  Report Type: 
  Country: US (occurrence: US)
  Receive Date: 20121218
  Receipt Date: 20121218
  Transmission Date: 20130627
  Serious: No
  Sender: FDA-Public Use
  Company Number: US-BRISTOL-MYERS SQUIBB COMPANY-16215725

PATIENT
  Age: 20 Year
  Sex: Male
  Weight: 63.04 kg

DRUGS (1)
  1. ABILIFY TABS 2 MG [Suspect]
     Indication: AFFECTIVE DISORDER
     Route: 048
     Dates: start: 201108

REACTIONS (1)
  - Dermatitis acneiform [Not Recovered/Not Resolved]
